FAERS Safety Report 11748172 (Version 4)
Quarter: 2016Q2

REPORT INFORMATION
  Report Type: Report from Study
  Country: ES (occurrence: ES)
  Receive Date: 20151117
  Receipt Date: 20160419
  Transmission Date: 20160815
  Serious: Yes (Other)
  Sender: FDA-Public Use
  Company Number: ES-ABBVIE-15P-144-1499027-00

PATIENT
  Age: 59 Year
  Sex: Female

DRUGS (1)
  1. DUODOPA [Suspect]
     Active Substance: CARBIDOPA\LEVODOPA
     Indication: PARKINSON^S DISEASE
     Route: 050
     Dates: start: 201504

REACTIONS (9)
  - Lumbar vertebral fracture [Recovering/Resolving]
  - Device issue [Unknown]
  - Gait disturbance [Unknown]
  - Sciatica [Unknown]
  - Weight decreased [Not Recovered/Not Resolved]
  - Incorrect route of drug administration [Unknown]
  - Drug effect decreased [Unknown]
  - Fall [Unknown]
  - Decreased appetite [Not Recovered/Not Resolved]

NARRATIVE: CASE EVENT DATE: 20151107
